FAERS Safety Report 12791269 (Version 2)
Quarter: 2016Q4

REPORT INFORMATION
  Report Type: Spontaneous
  Country: GB (occurrence: GB)
  Receive Date: 20160929
  Receipt Date: 20161018
  Transmission Date: 20170207
  Serious: Yes (Death, Other)
  Sender: FDA-Public Use
  Company Number: PHHY2016GB130591

PATIENT
  Age: 68 Year
  Sex: Female
  Weight: 51 kg

DRUGS (21)
  1. CO-AMILOFRUSE [Concomitant]
     Active Substance: AMILORIDE\FUROSEMIDE
     Dosage: 5/40, MORNING
     Dates: start: 20160819
  2. RIFAMPICIN [Concomitant]
     Active Substance: RIFAMPIN
     Indication: MYCOBACTERIUM AVIUM COMPLEX INFECTION
     Route: 065
     Dates: end: 20160819
  3. SERETIDE [Concomitant]
     Active Substance: FLUTICASONE PROPIONATE\SALMETEROL XINAFOATE
     Indication: RESPIRATORY DISORDER
     Dosage: 1 DF, BID, 500 ACCUHALER
     Route: 065
  4. SERTRALINE [Concomitant]
     Active Substance: SERTRALINE HYDROCHLORIDE
     Indication: DEPRESSION
     Dosage: 100 MG, QD, MORNING
     Route: 065
  5. CLARITHROMYCIN. [Concomitant]
     Active Substance: CLARITHROMYCIN
     Indication: MYCOBACTERIUM AVIUM COMPLEX INFECTION
     Route: 065
     Dates: end: 20160823
  6. CO-AMILOFRUSE [Concomitant]
     Active Substance: AMILORIDE\FUROSEMIDE
     Indication: OEDEMA PERIPHERAL
     Dosage: 2 DF, QD, 5/40, MORNING
     Route: 065
     Dates: start: 20160819
  7. TIOTROPIUM [Concomitant]
     Active Substance: TIOTROPIUM
     Indication: RESPIRATORY DISORDER
     Dosage: 1 DF, QD, MORNING
     Route: 065
     Dates: start: 20160823
  8. TRIMETHOPRIM. [Concomitant]
     Active Substance: TRIMETHOPRIM
     Indication: PRODUCT USED FOR UNKNOWN INDICATION
     Dosage: 200 MG, BID
     Route: 065
  9. AZITHROMYCIN ANHYDROUS. [Suspect]
     Active Substance: AZITHROMYCIN ANHYDROUS
     Indication: MYCOBACTERIUM AVIUM COMPLEX INFECTION
     Dosage: 500 MG, QW3
     Route: 048
     Dates: start: 20160823, end: 20160827
  10. TIOTROPIUM [Concomitant]
     Active Substance: TIOTROPIUM
     Dosage: MORNING
     Dates: start: 20160823
  11. CIPROFLOXACIN. [Concomitant]
     Active Substance: CIPROFLOXACIN
     Dates: end: 20160823
  12. BEDAQUILINE [Suspect]
     Active Substance: BEDAQUILINE
     Indication: MYCOBACTERIUM AVIUM COMPLEX INFECTION
     Dosage: 400MG DAILY FOR 2 WEEKS THEN 200MG THREE TIMES A WEEK
     Route: 048
     Dates: start: 20160823, end: 20160827
  13. MORPHINE SULFATE. [Concomitant]
     Active Substance: MORPHINE SULFATE
     Indication: DYSPNOEA
     Dosage: 10MG/5ML
     Route: 065
     Dates: start: 20160823
  14. CLOFAZIMINE [Concomitant]
     Active Substance: CLOFAZIMINE
     Indication: MYCOBACTERIUM AVIUM COMPLEX INFECTION
     Route: 065
     Dates: end: 20160823
  15. CIPROFLOXACIN. [Concomitant]
     Active Substance: CIPROFLOXACIN
     Indication: MYCOBACTERIUM AVIUM COMPLEX INFECTION
     Route: 065
     Dates: end: 20160823
  16. QUININE SULFATE. [Concomitant]
     Active Substance: QUININE SULFATE
     Indication: PRODUCT USED FOR UNKNOWN INDICATION
     Dosage: 300 MG, QD, AT NIGHT
     Route: 065
  17. QUININE SULFATE. [Concomitant]
     Active Substance: QUININE SULFATE
     Dosage: AT NIGHT
  18. SERETIDE [Concomitant]
     Active Substance: FLUTICASONE PROPIONATE\SALMETEROL XINAFOATE
     Dosage: 500 ACCUHALER
  19. SERTRALINE [Concomitant]
     Active Substance: SERTRALINE HYDROCHLORIDE
     Dosage: MORNING
  20. SALBUTAMOL [Concomitant]
     Active Substance: ALBUTEROL
     Indication: RESPIRATORY DISORDER
     Dosage: 200 UG, UNK
     Route: 065
  21. OXYGEN. [Concomitant]
     Active Substance: OXYGEN
     Indication: PRODUCT USED FOR UNKNOWN INDICATION
     Dosage: ON LONG TERM OXYGEN THERAPY
     Route: 065

REACTIONS (1)
  - Cardiac arrest [Fatal]

NARRATIVE: CASE EVENT DATE: 20160823
